FAERS Safety Report 9512692 (Version 1)
Quarter: 2013Q3

REPORT INFORMATION
  Report Type: Spontaneous
  Country: ME (occurrence: ME)
  Receive Date: 20130910
  Receipt Date: 20130910
  Transmission Date: 20140515
  Serious: Yes (Death)
  Sender: FDA-Public Use
  Company Number: ME-ROCHE-1272212

PATIENT
  Age: 78 Year
  Sex: Male

DRUGS (3)
  1. MIRCERA [Suspect]
     Indication: NEPHROGENIC ANAEMIA
     Route: 042
     Dates: start: 20130129, end: 20130726
  2. INSULIN [Concomitant]
     Indication: DIABETES MELLITUS
     Route: 058
  3. PROPRANOLOL [Concomitant]
     Indication: HYPERTENSION
     Route: 048

REACTIONS (1)
  - Septic shock [Fatal]
